FAERS Safety Report 7424402-4 (Version None)
Quarter: 2011Q2

REPORT INFORMATION
  Report Type: 
  Country: None (occurrence: None)
  Receive Date: 20110419
  Receipt Date: 20110414
  Transmission Date: 20111010
  Serious: Yes (Hospitalization)
  Sender: FDA-Public Use
  Company Number: US-B.I. PHARMACEUTICALS,INC./RIDGEFIELD-2011-BP-06495BP

PATIENT
  Age: 67 Year
  Sex: Male
  Weight: 88.45 kg

DRUGS (7)
  1. PRILOSEC [Concomitant]
     Dosage: 40 MG
     Dates: start: 20060501
  2. PLAVIX [Concomitant]
  3. AMIODARONE [Concomitant]
  4. TOPROL-XL [Concomitant]
     Dosage: 50 MG
     Dates: start: 20071101
  5. PRADAXA [Suspect]
     Indication: ATRIAL FIBRILLATION
     Dosage: 300 MG
     Route: 048
     Dates: start: 20110125
  6. LOTENSIN [Concomitant]
     Dosage: 20 MG
     Dates: start: 19950101
  7. CRESTOR [Concomitant]
     Dosage: 40 MG
     Dates: start: 20091109

REACTIONS (3)
  - UPPER RESPIRATORY TRACT INFECTION [None]
  - THROMBOCYTOPENIA [None]
  - PYREXIA [None]
